FAERS Safety Report 13030545 (Version 1)
Quarter: 2016Q4

REPORT INFORMATION
  Report Type: Spontaneous
  Country: FR (occurrence: FR)
  Receive Date: 20161215
  Receipt Date: 20161215
  Transmission Date: 20170207
  Serious: Yes (Life-Threatening)
  Sender: FDA-Public Use
  Company Number: FR-PFIZER INC-2016576364

PATIENT
  Age: 73 Year
  Sex: Female

DRUGS (2)
  1. ZYVOXID [Concomitant]
     Active Substance: LINEZOLID
     Indication: BACTERAEMIA
     Dosage: 600 MG, 2X/DAY
     Route: 041
     Dates: start: 20161123, end: 20161205
  2. TAZOCILLINE [Suspect]
     Active Substance: PIPERACILLIN SODIUM\TAZOBACTAM SODIUM
     Indication: LUNG INFECTION
     Dosage: 4 G, 3X/DAY
     Route: 041
     Dates: start: 20161124, end: 20161128

REACTIONS (2)
  - Hypokalaemia [Recovered/Resolved]
  - Electrocardiogram QT prolonged [Recovered/Resolved]

NARRATIVE: CASE EVENT DATE: 20161128
